FAERS Safety Report 7056273-2 (Version None)
Quarter: 2010Q4

REPORT INFORMATION
  Report Type: 
  Country: None (occurrence: None)
  Receive Date: 20101018
  Receipt Date: 20101008
  Transmission Date: 20110411
  Serious: Yes (Hospitalization)
  Sender: FDA-Public Use
  Company Number: 2010SP051910

PATIENT
  Age: 41 Year
  Sex: Female

DRUGS (14)
  1. MIRTAZAPINE [Suspect]
     Indication: AFFECT LABILITY
     Dosage: 15 MG; QD; PO, 30 MG; QD; PO, 45 MG; QD; PO, 15 MG; QD; PO, 45 MG; QD; PO
     Route: 048
     Dates: start: 20100609, end: 20100610
  2. MIRTAZAPINE [Suspect]
     Indication: AFFECT LABILITY
     Dosage: 15 MG; QD; PO, 30 MG; QD; PO, 45 MG; QD; PO, 15 MG; QD; PO, 45 MG; QD; PO
     Route: 048
     Dates: start: 20100611, end: 20100621
  3. MIRTAZAPINE [Suspect]
     Indication: AFFECT LABILITY
     Dosage: 15 MG; QD; PO, 30 MG; QD; PO, 45 MG; QD; PO, 15 MG; QD; PO, 45 MG; QD; PO
     Route: 048
     Dates: end: 20100916
  4. MIRTAZAPINE [Suspect]
     Indication: AFFECT LABILITY
     Dosage: 15 MG; QD; PO, 30 MG; QD; PO, 45 MG; QD; PO, 15 MG; QD; PO, 45 MG; QD; PO
     Route: 048
     Dates: start: 20100917, end: 20100921
  5. MIRTAZAPINE [Suspect]
     Indication: AFFECT LABILITY
     Dosage: 15 MG; QD; PO, 30 MG; QD; PO, 45 MG; QD; PO, 15 MG; QD; PO, 45 MG; QD; PO
     Route: 048
     Dates: start: 20100630
  6. ZYPREXA [Suspect]
     Indication: AFFECT LABILITY
     Dates: start: 20100920, end: 20100921
  7. ZYPREXA [Suspect]
     Indication: AFFECT LABILITY
     Dates: start: 20091101
  8. LAMOTRIGINE [Concomitant]
  9. LIMAS [Concomitant]
  10. SEROQUEL [Concomitant]
  11. PROMETHAZINE [Concomitant]
  12. NITRAZEPAM [Concomitant]
  13. ESTAZOLAM [Concomitant]
  14. MAGNESIUM OXIDE [Concomitant]

REACTIONS (4)
  - AGITATION [None]
  - CONDITION AGGRAVATED [None]
  - CONFUSIONAL STATE [None]
  - RHABDOMYOLYSIS [None]
